FAERS Safety Report 18898803 (Version 2)
Quarter: 2021Q1

REPORT INFORMATION
  Report Type: Spontaneous
  Country: US (occurrence: US)
  Receive Date: 20210216
  Receipt Date: 20210219
  Transmission Date: 20210420
  Serious: Yes (Other)
  Sender: FDA-Public Use
  Company Number: US-SA-2021SA044641

PATIENT
  Age: 38 Year
  Sex: Female

DRUGS (1)
  1. LANTUS SOLOSTAR [Suspect]
     Active Substance: INSULIN GLARGINE
     Dosage: 24 IU
     Route: 065

REACTIONS (9)
  - Diabetes mellitus inadequate control [Unknown]
  - Tongue pruritus [Unknown]
  - Chest pain [Unknown]
  - Product storage error [Unknown]
  - Drug ineffective [Unknown]
  - Intentional dose omission [Unknown]
  - Hypersensitivity [Unknown]
  - Heart rate increased [Unknown]
  - Expired product administered [Unknown]
